FAERS Safety Report 5107256-0 (Version None)
Quarter: 2006Q3

REPORT INFORMATION
  Report Type: 
  Country: None (occurrence: None)
  Receive Date: 20060914
  Receipt Date: 20060908
  Transmission Date: 20061208
  Serious: Yes (Other)
  Sender: FDA-Public Use
  Company Number: OSCN-PR-0609S-0269

PATIENT
  Age: 36 Year
  Sex: Male

DRUGS (1)
  1. OMNISCAN [Suspect]
     Indication: RENAL TRANSPLANT
     Dosage: 40 ML, SINGLE DOSE

REACTIONS (8)
  - BLOOD CREATININE INCREASED [None]
  - CELLULITIS [None]
  - CREATININE RENAL CLEARANCE DECREASED [None]
  - ERYTHEMA [None]
  - MOBILITY DECREASED [None]
  - REFUSAL OF TREATMENT BY PATIENT [None]
  - RENAL TRANSPLANT [None]
  - SKIN FIBROSIS [None]
